FAERS Safety Report 10110043 (Version 2)
Quarter: 2014Q2

REPORT INFORMATION
  Report Type: Spontaneous
  Country: US (occurrence: US)
  Receive Date: 20140425
  Receipt Date: 20140604
  Transmission Date: 20141212
  Serious: No
  Sender: FDA-Public Use
  Company Number: US-SA-2013SA112370

PATIENT
  Age: 5 Month
  Sex: Male
  Weight: 9.5 kg

DRUGS (3)
  1. MYOZYME [Suspect]
     Indication: GLYCOGEN STORAGE DISEASE TYPE II
     Route: 042
     Dates: start: 20130113
  2. SOTALOL [Concomitant]
  3. OMEPRAZOLE [Concomitant]

REACTIONS (1)
  - Antibody test positive [Not Recovered/Not Resolved]
